FAERS Safety Report 6592760-9 (Version None)
Quarter: 2010Q1

REPORT INFORMATION
  Report Type: 
  Country: None (occurrence: None)
  Receive Date: 20100212
  Receipt Date: 20100202
  Transmission Date: 20100710
  Serious: Yes (Life-Threatening, Hospitalization)
  Sender: FDA-Public Use
  Company Number: 10-PDX10-01078

PATIENT
  Age: 81 Year
  Sex: Male

DRUGS (6)
  1. PRALATREXATE      (20 MG/ML, INJECTION FOR INFUSION) [Suspect]
     Indication: BLADDER TRANSITIONAL CELL CARCINOMA
     Dosage: 190 MG/M2 (190 MG/M2, 1 IN 2  WK), IV
     Route: 042
     Dates: start: 20091119, end: 20100121
  2. LOPERAMIDE [Concomitant]
  3. TRIMEBUTINE [Concomitant]
  4. PHLOROGLUCINOL [Concomitant]
  5. RACECADOTRIL [Concomitant]
  6. DIOSMEKTYT [Concomitant]

REACTIONS (7)
  - BLOOD SODIUM DECREASED [None]
  - BLOOD UREA INCREASED [None]
  - DECREASED APPETITE [None]
  - DEHYDRATION [None]
  - DIARRHOEA [None]
  - HAEMOGLOBIN DECREASED [None]
  - PNEUMONIA [None]
